FAERS Safety Report 14756815 (Version 1)
Quarter: 2018Q2

REPORT INFORMATION
  Report Type: Spontaneous
  Country: US (occurrence: US)
  Receive Date: 20180407
  Receipt Date: 20180407
  Transmission Date: 20180711
  Serious: Yes (Hospitalization)
  Sender: FDA-Public Use
  Company Number: None

PATIENT
  Age: 54 Year
  Sex: Male
  Weight: 69.4 kg

DRUGS (3)
  1. CISPLATIN (119875) [Suspect]
     Active Substance: CISPLATIN
     Dates: end: 20170822
  2. TAXOL [Suspect]
     Active Substance: PACLITAXEL
     Dates: end: 20171219
  3. GEMCITABINE HYDROCHLORIDE. [Suspect]
     Active Substance: GEMCITABINE HYDROCHLORIDE
     Dates: end: 20171219

REACTIONS (2)
  - Intracranial venous sinus thrombosis [None]
  - Transverse sinus thrombosis [None]

NARRATIVE: CASE EVENT DATE: 20180312
